FAERS Safety Report 14967160 (Version 1)
Quarter: 2018Q3

REPORT INFORMATION
  Report Type: Report from Study
  Country: AU (occurrence: AU)
  Receive Date: 20180604
  Receipt Date: 20180604
  Transmission Date: 20181010
  Serious: Yes (Hospitalization)
  Sender: FDA-Public Use
  Company Number: AU-CHEPLA-C20170589

PATIENT
  Age: 74 Year
  Sex: Female
  Weight: 58.1 kg

DRUGS (3)
  1. METOPROLOL. [Concomitant]
     Active Substance: METOPROLOL
     Indication: HYPERTENSION
  2. IMG?7289 [Suspect]
     Active Substance: INVESTIGATIONAL PRODUCT
     Indication: MYELOID LEUKAEMIA
     Route: 048
  3. TRETINOIN. [Suspect]
     Active Substance: TRETINOIN
     Indication: MYELOID LEUKAEMIA
     Route: 048

REACTIONS (16)
  - Product use in unapproved indication [Unknown]
  - Blood glucose increased [None]
  - Haemoglobin decreased [None]
  - White blood cell count decreased [None]
  - Platelet count decreased [None]
  - Haematocrit decreased [None]
  - Myeloblast percentage increased [None]
  - Atrial fibrillation [Recovered/Resolved]
  - Mean cell volume increased [None]
  - Mean cell haemoglobin increased [None]
  - Anion gap increased [None]
  - Red blood cell count decreased [None]
  - Neutrophil count decreased [None]
  - Gamma-glutamyltransferase increased [None]
  - Blood alkaline phosphatase increased [None]
  - Blood lactate dehydrogenase increased [None]

NARRATIVE: CASE EVENT DATE: 20170820
